FAERS Safety Report 13719199 (Version 1)
Quarter: 2017Q3

REPORT INFORMATION
  Report Type: Spontaneous
  Country: FR (occurrence: FR)
  Receive Date: 20170705
  Receipt Date: 20170705
  Transmission Date: 20171127
  Serious: Yes (Other)
  Sender: FDA-Public Use
  Company Number: FR-BAYER-2017-126720

PATIENT
  Age: 36 Year
  Sex: Female

DRUGS (1)
  1. MIRENA [Suspect]
     Active Substance: LEVONORGESTREL
     Indication: CONTRACEPTION
     Dosage: 20 MCG/24HR, CONT
     Route: 015
     Dates: end: 20161020

REACTIONS (9)
  - Vaginal infection [Unknown]
  - Loss of libido [Unknown]
  - Fatigue [Unknown]
  - Eczema eyelids [Unknown]
  - Depression [Unknown]
  - Back pain [Unknown]
  - Night sweats [Unknown]
  - Paraesthesia [Unknown]
  - Abdominal pain [Unknown]

NARRATIVE: CASE EVENT DATE: 20111030
